FAERS Safety Report 6161820-9 (Version None)
Quarter: 2009Q2

REPORT INFORMATION
  Report Type: 
  Country: None (occurrence: None)
  Receive Date: 20090417
  Receipt Date: 20090417
  Transmission Date: 20091009
  Serious: Yes (Death)
  Sender: FDA-Public Use
  Company Number: None

PATIENT
  Age: 55 Year
  Sex: Female
  Weight: 92.9874 kg

DRUGS (1)
  1. FENTANYL TRANSDERMAL SYSTEM [Suspect]
     Indication: FIBROMYALGIA
     Dosage: APPLY ONE PATCH EVERY 72 HOURS TRANSDERMAL
     Route: 062
     Dates: start: 20081231, end: 20090103

REACTIONS (3)
  - DRUG TOXICITY [None]
  - HYPERTENSION [None]
  - UNEVALUABLE EVENT [None]
